FAERS Safety Report 9958705 (Version 2)
Quarter: 2014Q1

REPORT INFORMATION
  Report Type: Spontaneous
  Country: JP (occurrence: JP)
  Receive Date: 20140305
  Receipt Date: 20140313
  Transmission Date: 20141002
  Serious: Yes (Other)
  Sender: FDA-Public Use
  Company Number: JP-UCBSA-113724

PATIENT
  Age: 45 Year
  Sex: Male

DRUGS (6)
  1. E KEPPRA [Suspect]
     Indication: CONVULSION
     Route: 048
     Dates: start: 20140122, end: 20140127
  2. ALEVIATIN [Suspect]
     Indication: CONVULSION
     Dosage: DAILY DOSE: 500 MG
     Route: 042
     Dates: start: 20140120, end: 20140121
  3. ALEVIATIN [Suspect]
     Indication: CONVULSION
     Dosage: DAILY DOSE: 250 MG
     Route: 042
     Dates: start: 20140122, end: 20140123
  4. ALEVIATIN [Suspect]
     Indication: CONVULSION
     Dosage: DAILY DOSE: 200 MG
     Route: 048
     Dates: start: 20140124, end: 20140126
  5. DEPAS [Concomitant]
     Route: 048
     Dates: start: 20140122
  6. BELZALIN [Concomitant]
     Route: 048
     Dates: start: 20140122

REACTIONS (4)
  - Pyrexia [Recovering/Resolving]
  - Rash [Recovering/Resolving]
  - Hepatic function abnormal [Recovering/Resolving]
  - Hallucination [Recovered/Resolved]
